FAERS Safety Report 8510202-0 (Version None)
Quarter: 2012Q3

REPORT INFORMATION
  Report Type: 
  Country: None (occurrence: None)
  Receive Date: 20120713
  Receipt Date: 20120702
  Transmission Date: 20120928
  Serious: No
  Sender: FDA-Public Use
  Company Number: US-009507513-1206USA02912

PATIENT

DRUGS (3)
  1. JANUVIA [Suspect]
     Indication: DIABETES MELLITUS
     Dosage: 100 MG, QD
     Route: 048
     Dates: start: 20120101, end: 20120611
  2. MK-9378 [Concomitant]
  3. LIPITOR [Concomitant]

REACTIONS (2)
  - CHEST PAIN [None]
  - BACK PAIN [None]
